FAERS Safety Report 9215113 (Version 2)
Quarter: 2013Q2

REPORT INFORMATION
  Report Type: Spontaneous
  Country: AU (occurrence: AU)
  Receive Date: 20130405
  Receipt Date: 20130520
  Transmission Date: 20140414
  Serious: Yes (Hospitalization, Disabling)
  Sender: FDA-Public Use
  Company Number: AU-GILEAD-2013-0073003

PATIENT
  Age: 47 Year
  Sex: Male

DRUGS (2)
  1. ADEFOVIR DIPIVOXIL [Suspect]
     Indication: ANTIVIRAL PROPHYLAXIS
     Dosage: 20 MG, QD
     Route: 048
     Dates: start: 20050203, end: 20070913
  2. ADEFOVIR DIPIVOXIL [Suspect]
     Dosage: 10 MG, QD
     Route: 048
     Dates: start: 20070913, end: 20100218

REACTIONS (2)
  - Osteoporosis [Not Recovered/Not Resolved]
  - Renal tubular disorder [Recovered/Resolved with Sequelae]
